FAERS Safety Report 4718812-3 (Version None)
Quarter: 2005Q3

REPORT INFORMATION
  Report Type: 
  Country: None (occurrence: None)
  Receive Date: 20050719
  Receipt Date: 20050712
  Transmission Date: 20060218
  Serious: Yes (Death)
  Sender: FDA-Public Use
  Company Number: S05-USA-03505-02

PATIENT

DRUGS (2)
  1. CERVIDIL [Suspect]
  2. PITOCIN [Concomitant]

REACTIONS (2)
  - DEATH NEONATAL [None]
  - DRUG EXPOSURE DURING PREGNANCY [None]
